FAERS Safety Report 10647466 (Version 3)
Quarter: 2015Q1

REPORT INFORMATION
  Report Type: Spontaneous
  Country: US (occurrence: US)
  Receive Date: 20141211
  Receipt Date: 20150210
  Transmission Date: 20150720
  Serious: No
  Sender: FDA-Public Use
  Company Number: US-GLAXOSMITHKLINE-A1080111A

PATIENT

DRUGS (1)
  1. ALLI [Suspect]
     Active Substance: ORLISTAT
     Indication: WEIGHT DECREASED
     Route: 048
     Dates: end: 20140705

REACTIONS (4)
  - Constipation [Not Recovered/Not Resolved]
  - Treatment noncompliance [Unknown]
  - Product quality issue [Unknown]
  - Rectal discharge [Recovered/Resolved]
